FAERS Safety Report 8315695-X (Version None)
Quarter: 2012Q2

REPORT INFORMATION
  Report Type: 
  Country: None (occurrence: None)
  Receive Date: 20120426
  Receipt Date: 20120425
  Transmission Date: 20120825
  Serious: Yes (Death, Other)
  Sender: FDA-Public Use
  Company Number: PHHY2012GB035147

PATIENT
  Age: 49 Year
  Sex: Male

DRUGS (4)
  1. MORPHINE SULFATE [Suspect]
  2. COCAINE [Suspect]
  3. OXYCODONE HYDROCHLORIDE [Suspect]
  4. DIAZEPAM [Suspect]

REACTIONS (2)
  - TOXICITY TO VARIOUS AGENTS [None]
  - BINGE DRINKING [None]
